FAERS Safety Report 18930231 (Version 4)
Quarter: 2021Q4

REPORT INFORMATION
  Report Type: Report from Study
  Country: US (occurrence: US)
  Receive Date: 20210223
  Receipt Date: 20211118
  Transmission Date: 20220303
  Serious: No
  Sender: FDA-Public Use
  Company Number: NVSC2021US037560

PATIENT
  Sex: Male

DRUGS (1)
  1. ENTRESTO [Suspect]
     Active Substance: SACUBITRIL\VALSARTAN
     Indication: Cardiac failure chronic
     Dosage: UNK UNK, UNKNOWN (SINCE YEAR)
     Route: 048

REACTIONS (8)
  - Cardiac disorder [Unknown]
  - Throat clearing [Unknown]
  - Memory impairment [Unknown]
  - Confusional state [Unknown]
  - Illness [Unknown]
  - Wheezing [Unknown]
  - Fatigue [Unknown]
  - Cough [Unknown]
